FAERS Safety Report 8761239 (Version 1)
Quarter: 2012Q4

REPORT INFORMATION
  Report Type: Report from Study
  Country: IT (occurrence: IT)
  Receive Date: 20120830
  Receipt Date: 20120830
  Transmission Date: 20130627
  Serious: Yes (Other)
  Sender: FDA-Public Use
  Company Number: IT-GLAXOSMITHKLINE-B0592280B

PATIENT
  Age: 44 Year
  Sex: Female
  Weight: 56 kg

DRUGS (3)
  1. LAPATINIB [Suspect]
     Indication: BREAST CANCER
     Dosage: 1500MG Per day
     Route: 048
     Dates: start: 20090527, end: 20090828
  2. TRASTUZUMAB [Suspect]
     Indication: BREAST CANCER
     Dosage: 108MG Cyclic
     Route: 042
     Dates: start: 20090130, end: 20090417
  3. PACLITAXEL [Suspect]
     Indication: BREAST CANCER
     Route: 065
     Dates: end: 200908

REACTIONS (1)
  - Cardiac failure congestive [Recovered/Resolved]
